FAERS Safety Report 21824305 (Version 1)
Quarter: 2023Q1

REPORT INFORMATION
  Report Type: Spontaneous
  Country: US (occurrence: None)
  Receive Date: 20230105
  Receipt Date: 20230105
  Transmission Date: 20230418
  Serious: Yes (Hospitalization)
  Sender: FDA-Public Use
  Company Number: None

PATIENT
  Age: 67 Year
  Sex: Female
  Weight: 62.9 kg

DRUGS (2)
  1. ERBITUX [Suspect]
     Active Substance: CETUXIMAB
     Dates: end: 20221212
  2. TAXOTERE [Suspect]
     Active Substance: DOCETAXEL
     Dates: end: 20221212

REACTIONS (10)
  - Stomatitis [None]
  - Oral pain [None]
  - Inadequate analgesia [None]
  - Dysphagia [None]
  - Fatigue [None]
  - Cough [None]
  - Somnolence [None]
  - Hypoxia [None]
  - Aspiration [None]
  - Pyrexia [None]

NARRATIVE: CASE EVENT DATE: 20221216
